FAERS Safety Report 4379146-2 (Version None)
Quarter: 2004Q2

REPORT INFORMATION
  Report Type: 
  Country: None (occurrence: None)
  Receive Date: 20040610
  Receipt Date: 20040525
  Transmission Date: 20050107
  Serious: Yes (Death)
  Sender: FDA-Public Use
  Company Number: 200418271BWH

PATIENT
  Age: 65 Year
  Sex: Male
  Weight: 73.7095 kg

DRUGS (1)
  1. MYCELEX [Suspect]
     Dosage: ORAL
     Route: 048

REACTIONS (1)
  - CARCINOMA [None]
